FAERS Safety Report 4264985-9 (Version None)
Quarter: 2004Q1

REPORT INFORMATION
  Report Type: 
  Country: None (occurrence: None)
  Receive Date: 20040106
  Receipt Date: 20031110
  Transmission Date: 20041129
  Serious: Yes (Other)
  Sender: FDA-Public Use
  Company Number: WAES 0311USA00841

PATIENT
  Age: 64 Year
  Sex: Female

DRUGS (5)
  1. FOSAMAX [Suspect]
     Indication: OSTEOPENIA
     Route: 048
  2. CALCIUM (UNSPECIFIED) [Concomitant]
  3. ESTROGENS (UNSPECIFIED) [Concomitant]
  4. PREDNISONE [Concomitant]
  5. VITAMIN D (UNSPECIFIED) [Concomitant]

REACTIONS (7)
  - DRUG INEFFECTIVE [None]
  - FEMUR FRACTURE [None]
  - FOOT FRACTURE [None]
  - FRACTURE DELAYED UNION [None]
  - HIP FRACTURE [None]
  - RENAL OSTEODYSTROPHY [None]
  - RIB FRACTURE [None]
